FAERS Safety Report 8624416-2 (Version None)
Quarter: 2012Q3

REPORT INFORMATION
  Report Type: 
  Country: None (occurrence: None)
  Receive Date: 20120827
  Receipt Date: 20120815
  Transmission Date: 20120928
  Serious: Yes (Other)
  Sender: FDA-Public Use
  Company Number: MX-SANOFI-AVENTIS-2012SA042842

PATIENT
  Age: 47 Year
  Sex: Male

DRUGS (3)
  1. PREDNISONE TAB [Concomitant]
  2. CHLOROQUINE PHOSPHATE [Suspect]
     Route: 065
  3. PREDNISONE TAB [Concomitant]

REACTIONS (4)
  - CEREBRAL ATROPHY [None]
  - PARESIS CRANIAL NERVE [None]
  - VISION BLURRED [None]
  - DIPLOPIA [None]
